FAERS Safety Report 10542584 (Version 1)
Quarter: 2014Q4

REPORT INFORMATION
  Report Type: Spontaneous
  Country: US (occurrence: None)
  Receive Date: 20141024
  Receipt Date: 20141024
  Transmission Date: 20150529
  Serious: Yes (Disabling)
  Sender: FDA-Public Use
  Company Number: None

PATIENT
  Age: 64 Year
  Sex: Female
  Weight: 53.52 kg

DRUGS (1)
  1. LISINOPRIL. [Suspect]
     Active Substance: LISINOPRIL
     Indication: BLOOD PRESSURE
     Dosage: 1  TAKEN BY MOUTH
     Route: 048
     Dates: start: 20140915, end: 20141022

REACTIONS (4)
  - Product substitution issue [None]
  - Product quality issue [None]
  - Headache [None]
  - Blood pressure increased [None]

NARRATIVE: CASE EVENT DATE: 20141021
